FAERS Safety Report 7948854-6 (Version None)
Quarter: 2011Q4

REPORT INFORMATION
  Report Type: 
  Country: None (occurrence: None)
  Receive Date: 20111130
  Receipt Date: 20111121
  Transmission Date: 20120403
  Serious: Yes (Other)
  Sender: FDA-Public Use
  Company Number: PHHY2011GB29781

PATIENT
  Age: 74 Year
  Sex: Female

DRUGS (1)
  1. DESFERRIOXAMINE MESYLATE [Suspect]
     Indication: MYELOFIBROSIS
     Dosage: 1.5 G, UNK
     Route: 058

REACTIONS (11)
  - VISUAL ACUITY REDUCED [None]
  - CORNEAL OEDEMA [None]
  - TOXICITY TO VARIOUS AGENTS [None]
  - OPTIC NEUROPATHY [None]
  - CORNEAL DISORDER [None]
  - VISUAL FIELD DEFECT [None]
  - COLOUR VISION TESTS ABNORMAL [None]
  - DEAFNESS NEUROSENSORY [None]
  - CATARACT [None]
  - OCULAR TOXICITY [None]
  - CONJUNCTIVAL HYPERAEMIA [None]
